FAERS Safety Report 6235181-0 (Version None)
Quarter: 2009Q2

REPORT INFORMATION
  Report Type: 
  Country: None (occurrence: None)
  Receive Date: 20090618
  Receipt Date: 20090610
  Transmission Date: 20091009
  Serious: Yes (Other)
  Sender: FDA-Public Use
  Company Number: US-GENENTECH-283943

PATIENT
  Sex: Female

DRUGS (2)
  1. RITUXAN [Suspect]
     Indication: NON-HODGKIN'S LYMPHOMA
     Dosage: 600 MG, Q3M AFTER 07-JAN-2009
     Route: 042
  2. RITUXAN [Suspect]
     Dosage: 600 MG, 1/WEEK
     Route: 042
     Dates: start: 20081119, end: 20090107

REACTIONS (1)
  - TRANSPLANT REJECTION [None]
